FAERS Safety Report 15785998 (Version 1)
Quarter: 2018Q4

REPORT INFORMATION
  Report Type: Spontaneous
  Country: US (occurrence: US)
  Receive Date: 20181212
  Receipt Date: 20181212
  Transmission Date: 20190205
  Serious: No
  Sender: FDA-Public Use
  Company Number: None

PATIENT
  Age: 67 Year
  Sex: Female
  Weight: 68.95 kg

DRUGS (4)
  1. BENLYSTA [Suspect]
     Active Substance: BELIMUMAB
     Indication: RHEUMATOID ARTHRITIS
  2. BENLYSTA [Suspect]
     Active Substance: BELIMUMAB
     Indication: CERVICAL SPINAL STENOSIS
     Route: 058
     Dates: start: 201802
  3. BENLYSTA [Suspect]
     Active Substance: BELIMUMAB
     Indication: MYOSITIS
  4. BENLYSTA [Suspect]
     Active Substance: BELIMUMAB
     Indication: OSTEOPOROSIS

REACTIONS (1)
  - Back pain [None]
